FAERS Safety Report 25811897 (Version 1)
Quarter: 2025Q3

REPORT INFORMATION
  Report Type: Report from Study
  Country: US (occurrence: US)
  Receive Date: 20250917
  Receipt Date: 20250917
  Transmission Date: 20251020
  Serious: No
  Sender: Unknown Manufacturer
  Company Number: US-MIRUM PHARMACEUTICALS, INC.-US-MIR-25-00641

PATIENT

DRUGS (3)
  1. LIVMARLI [Suspect]
     Active Substance: MARALIXIBAT CHLORIDE
     Indication: Liver disorder
     Dosage: 0.3 MILLILITER, Q12H (INCREASED DOSE)
     Route: 065
  2. LIVMARLI [Suspect]
     Active Substance: MARALIXIBAT CHLORIDE
     Route: 065
     Dates: start: 20250109
  3. CHOLESTYRAMINE [Suspect]
     Active Substance: CHOLESTYRAMINE
     Indication: Pruritus
     Route: 065
     Dates: start: 20250908

REACTIONS (5)
  - Insomnia [Unknown]
  - Blood bilirubin decreased [Unknown]
  - Bile acids increased [Unknown]
  - Abdominal discomfort [Unknown]
  - Off label use [Unknown]

NARRATIVE: CASE EVENT DATE: 20250109
